FAERS Safety Report 9894462 (Version 2)
Quarter: 2014Q2

REPORT INFORMATION
  Report Type: Spontaneous
  Country: US (occurrence: US)
  Receive Date: 20140213
  Receipt Date: 20140410
  Transmission Date: 20141212
  Serious: Yes (Congenital Anomaly, Other)
  Sender: FDA-Public Use
  Company Number: US-PFIZER INC-2014039948

PATIENT
  Sex: Male

DRUGS (12)
  1. ZOLOFT [Suspect]
     Dosage: UNK
     Route: 064
     Dates: start: 1993, end: 1993
  2. ZOLOFT [Suspect]
     Dosage: UNK
     Route: 064
     Dates: start: 199404
  3. SERTRALINE HCL [Suspect]
     Dosage: UNK
     Route: 064
     Dates: start: 1993, end: 1993
  4. SERTRALINE HCL [Suspect]
     Dosage: UNK
     Route: 064
     Dates: start: 199404
  5. PRENATAL VITAMINS [Concomitant]
     Dosage: UNK
     Route: 064
  6. TYLENOL [Concomitant]
     Dosage: UNK
     Route: 064
  7. MOTRIN [Concomitant]
     Dosage: UNK
     Route: 064
  8. SUDAFED [Concomitant]
     Dosage: UNK
     Route: 064
  9. PHENERGAN [Concomitant]
     Dosage: UNK
     Route: 064
  10. VICODIN [Concomitant]
     Dosage: UNK
     Route: 064
  11. ALBUTEROL [Concomitant]
     Dosage: UNK
     Route: 064
  12. DEPO-PROVERA [Concomitant]
     Dosage: UNK
     Route: 064

REACTIONS (5)
  - Maternal exposure during pregnancy [Unknown]
  - Encephalocele [Unknown]
  - Congenital hydrocephalus [Unknown]
  - Cerebral ventricle dilatation [Unknown]
  - Convulsion [Unknown]
